FAERS Safety Report 10261980 (Version 1)
Quarter: 2014Q2

REPORT INFORMATION
  Report Type: Spontaneous
  Country: FR (occurrence: FR)
  Receive Date: 20140626
  Receipt Date: 20140626
  Transmission Date: 20141212
  Serious: Yes (Hospitalization)
  Sender: FDA-Public Use
  Company Number: FR-PFIZER INC-2014169584

PATIENT
  Age: 93 Year
  Sex: Male

DRUGS (9)
  1. TAZOCILLINE [Suspect]
     Indication: PROSTATITIS
     Dosage: 4 G, 3X/DAY
     Route: 042
     Dates: start: 20140409, end: 20140424
  2. TAZOCILLINE [Suspect]
     Dosage: UNK
     Route: 042
     Dates: start: 20140430, end: 20140505
  3. INVANZ [Suspect]
     Indication: PROSTATITIS
     Dosage: 1 G, UNK
     Route: 042
     Dates: start: 20140427, end: 20140430
  4. PREVISCAN [Concomitant]
     Dosage: 20 MG, UNK
  5. VANCOMYCIN [Concomitant]
  6. CEFTRIAXONE SODIUM [Concomitant]
  7. FLAGYL ^AVENTIS^ [Concomitant]
  8. VALSARTAN [Concomitant]
  9. ATENOLOL [Concomitant]

REACTIONS (3)
  - Confusional state [Recovered/Resolved]
  - Clostridium difficile colitis [Recovered/Resolved]
  - Fall [Recovered/Resolved]
